FAERS Safety Report 23679031 (Version 1)
Quarter: 2024Q1

REPORT INFORMATION
  Report Type: Spontaneous
  Country: CN (occurrence: CN)
  Receive Date: 20240327
  Receipt Date: 20240327
  Transmission Date: 20240410
  Serious: Yes (Life-Threatening, Hospitalization, Other)
  Sender: FDA-Public Use
  Company Number: CN-STERISCIENCE B.V.-2024-ST-000327

PATIENT
  Age: 77 Year
  Sex: Female

DRUGS (7)
  1. MEROPENEM [Suspect]
     Active Substance: MEROPENEM
     Indication: Pneumonia chlamydial
     Dosage: UNK
     Route: 065
     Dates: start: 20221012, end: 20221014
  2. MEROPENEM [Suspect]
     Active Substance: MEROPENEM
     Indication: Anti-infective therapy
  3. PIPERACILLIN SODIUM\TAZOBACTAM SODIUM [Suspect]
     Active Substance: PIPERACILLIN SODIUM\TAZOBACTAM SODIUM
     Indication: Pneumonia chlamydial
     Dosage: UNK
     Route: 065
     Dates: start: 20221014, end: 202210
  4. MOXIFLOXACIN [Suspect]
     Active Substance: MOXIFLOXACIN
     Indication: Pneumonia chlamydial
     Dosage: UNK
     Route: 065
     Dates: start: 20221012, end: 20221014
  5. MOXIFLOXACIN [Suspect]
     Active Substance: MOXIFLOXACIN
     Indication: Anti-infective therapy
  6. DOXYCYCLINE [Suspect]
     Active Substance: DOXYCYCLINE
     Indication: Pneumonia chlamydial
     Dosage: UNK
     Route: 065
     Dates: start: 20221014, end: 202210
  7. NIMODIPINE [Concomitant]
     Active Substance: NIMODIPINE
     Indication: Cerebral vasoconstriction
     Dosage: UNK
     Route: 065
     Dates: start: 20221012

REACTIONS (2)
  - Condition aggravated [Unknown]
  - Drug ineffective for unapproved indication [Unknown]

NARRATIVE: CASE EVENT DATE: 20221001
